FAERS Safety Report 6596663-5 (Version None)
Quarter: 2010Q1

REPORT INFORMATION
  Report Type: 
  Country: None (occurrence: None)
  Receive Date: 20100223
  Receipt Date: 20100218
  Transmission Date: 20100710
  Serious: Yes (Other)
  Sender: FDA-Public Use
  Company Number: ES-BAYER-201016259GPV

PATIENT
  Age: 44 Year
  Sex: Female
  Weight: 60 kg

DRUGS (2)
  1. ACTIRA [Suspect]
     Indication: SINUSITIS
     Dosage: TOTAL DAILY DOSE: 400 MG  UNIT DOSE: 400 MG
     Route: 048
     Dates: start: 20100121, end: 20100121
  2. NASACORT [Concomitant]
     Indication: SINUSITIS
     Dosage: TOTAL DAILY DOSE: 110 ?G
     Route: 048
     Dates: start: 20100121, end: 20100121

REACTIONS (6)
  - CHILLS [None]
  - DIARRHOEA [None]
  - DIZZINESS [None]
  - MALAISE [None]
  - NAUSEA [None]
  - VOMITING [None]
